FAERS Safety Report 8626021-0 (Version None)
Quarter: 2012Q3

REPORT INFORMATION
  Report Type: 
  Country: None (occurrence: None)
  Receive Date: 20120827
  Receipt Date: 20120814
  Transmission Date: 20120928
  Serious: Yes (Other)
  Sender: FDA-Public Use
  Company Number: JP-VERTEX PHARMACEUTICAL INC.-AE-2012-009868

PATIENT
  Age: 49 Year
  Sex: Female

DRUGS (10)
  1. PEG-INTRON [Concomitant]
     Dosage: 0.7 UNK, UNK
     Route: 058
     Dates: start: 20120529
  2. RIBAVIRIN [Concomitant]
     Dosage: 200 MG, QD
     Route: 048
     Dates: start: 20120605, end: 20120703
  3. NIZATIDINE [Concomitant]
     Dosage: 300 MG, QD
     Route: 048
  4. VX-950 [Suspect]
     Indication: HEPATITIS C
     Dosage: 1500 MG, QD
     Route: 048
     Dates: start: 20120515
  5. RIBAVIRIN [Concomitant]
     Indication: HEPATITIS C
     Dosage: 400 MG, QD
     Route: 048
     Dates: start: 20120515, end: 20120604
  6. ALOSENN                            /00476901/ [Concomitant]
     Dosage: 1 G, QD
     Route: 048
  7. MAGLAX [Concomitant]
     Dosage: 990 MG, QD
     Route: 048
  8. PEG-INTRON [Concomitant]
     Indication: HEPATITIS C
     Dosage: 1.1 UNK, UNK
     Route: 058
     Dates: start: 20120515, end: 20120528
  9. URSODIOL [Concomitant]
     Dosage: 300 MG, QD
     Route: 048
  10. NORVASC [Concomitant]
     Dosage: 2.5 MG, QD
     Route: 048

REACTIONS (1)
  - NEUTROPHIL COUNT DECREASED [None]
